FAERS Safety Report 5778038-1 (Version None)
Quarter: 2008Q2

REPORT INFORMATION
  Report Type: 
  Country: None (occurrence: None)
  Receive Date: 20080619
  Receipt Date: 20080606
  Transmission Date: 20081010
  Serious: Yes (Disabling, Other)
  Sender: FDA-Public Use
  Company Number: GB-BAYER-200810676BNE

PATIENT
  Sex: Male

DRUGS (1)
  1. MIRENA [Suspect]
     Indication: MENORRHAGIA

REACTIONS (5)
  - HAEMORRHAGE [None]
  - HYPERHIDROSIS [None]
  - LACERATION [None]
  - PALLOR [None]
  - PRESYNCOPE [None]
